FAERS Safety Report 17420347 (Version 4)
Quarter: 2020Q2

REPORT INFORMATION
  Report Type: Spontaneous
  Country: US (occurrence: US)
  Receive Date: 20200214
  Receipt Date: 20200612
  Transmission Date: 20200713
  Serious: No
  Sender: FDA-Public Use
  Company Number: US-VERTEX PHARMACEUTICALS-2020-002614

PATIENT
  Age: 71 Year
  Sex: Female

DRUGS (23)
  1. ADVAIR HFA [Concomitant]
     Active Substance: FLUTICASONE PROPIONATE\SALMETEROL XINAFOATE
  2. TOBRAMYCIN. [Concomitant]
     Active Substance: TOBRAMYCIN
  3. SODIUM CHLORIDE. [Concomitant]
     Active Substance: SODIUM CHLORIDE
  4. CAYSTON [Concomitant]
     Active Substance: AZTREONAM
  5. CLINDAMYCIN. [Concomitant]
     Active Substance: CLINDAMYCIN
  6. VITAMIN D [COLECALCIFEROL] [Concomitant]
     Active Substance: CHOLECALCIFEROL
  7. TRIKAFTA [Suspect]
     Active Substance: ELEXACAFTOR\IVACAFTOR\TEZACAFTOR
     Indication: CYSTIC FIBROSIS
     Dosage: 2 TABLETS OF 100MG ELEXACAFTOR/ 50 MG TEZACAFTOR/ 75 MG IVACAFTOR AM; 1 TABLET 150 MG IVACAFTOR PM
     Route: 048
     Dates: start: 20200103
  8. PROGESTERONE. [Concomitant]
     Active Substance: PROGESTERONE
     Dosage: UNK
  9. ZETIA [Concomitant]
     Active Substance: EZETIMIBE
  10. ALLEGRA [Concomitant]
     Active Substance: FEXOFENADINE HYDROCHLORIDE
  11. SULFACETAMIDE. [Concomitant]
     Active Substance: SULFACETAMIDE
  12. FEMRING [Concomitant]
     Active Substance: ESTRADIOL ACETATE
  13. FLONASE [Concomitant]
     Active Substance: FLUTICASONE PROPIONATE
  14. ESTRADIOL. [Concomitant]
     Active Substance: ESTRADIOL
  15. ALBUTEROL [SALBUTAMOL] [Concomitant]
     Active Substance: ALBUTEROL
  16. NIACINAMIDE [Concomitant]
     Active Substance: NIACINAMIDE
  17. CALCIUM [Concomitant]
     Active Substance: CALCIUM
  18. COENZYME [Concomitant]
     Active Substance: UBIDECARENONE
  19. LIVALO [Concomitant]
     Active Substance: PITAVASTATIN CALCIUM
  20. MAGNESIUM [Concomitant]
     Active Substance: MAGNESIUM
  21. TRETINOIN. [Concomitant]
     Active Substance: TRETINOIN
  22. GENTAMICIN. [Concomitant]
     Active Substance: GENTAMICIN
  23. MIRALAX [Concomitant]
     Active Substance: POLYETHYLENE GLYCOL 3350

REACTIONS (5)
  - Joint swelling [Recovered/Resolved]
  - Acne [Recovering/Resolving]
  - Rash [Unknown]
  - Peripheral swelling [Recovered/Resolved]
  - Pruritus [Recovering/Resolving]

NARRATIVE: CASE EVENT DATE: 202002
